FAERS Safety Report 7958477-0 (Version None)
Quarter: 2011Q4

REPORT INFORMATION
  Report Type: 
  Country: None (occurrence: None)
  Receive Date: 20111205
  Receipt Date: 20111129
  Transmission Date: 20120403
  Serious: Yes (Other)
  Sender: FDA-Public Use
  Company Number: MX-BRISTOL-MYERS SQUIBB COMPANY-16263212

PATIENT
  Age: 83 Year
  Sex: Female

DRUGS (1)
  1. IRBESARTAN AND HYDROCHLOROTHIAZIDE [Suspect]
     Dosage: 1DF:150MG+12.5MG
     Route: 048

REACTIONS (1)
  - CARDIAC DISORDER [None]
